FAERS Safety Report 9057624 (Version 1)
Quarter: 2013Q1

REPORT INFORMATION
  Report Type: Spontaneous
  Country: US (occurrence: None)
  Receive Date: 20130204
  Receipt Date: 20130204
  Transmission Date: 20140127
  Serious: Yes (Hospitalization)
  Sender: FDA-Public Use
  Company Number: None

PATIENT
  Age: 88 Year
  Sex: Female
  Weight: 76.4 kg

DRUGS (14)
  1. TRAMADOL [Suspect]
     Indication: BACK PAIN
     Route: 048
  2. SYNTHROID [Concomitant]
  3. PREDNISONE [Concomitant]
  4. FOLIC ACID [Concomitant]
  5. NORVASC [Concomitant]
  6. METHOTREXATE [Concomitant]
  7. TRICOR [Concomitant]
  8. METOPROLOL SUCC [Concomitant]
  9. ALIGN [Concomitant]
  10. VIT D [Concomitant]
  11. ASA [Concomitant]
  12. MVI [Concomitant]
  13. OCUVITE [Concomitant]
  14. CA [Concomitant]

REACTIONS (2)
  - Hepatitis [None]
  - Overdose [None]
